FAERS Safety Report 9267500 (Version 1)
Quarter: 2013Q2

REPORT INFORMATION
  Report Type: Spontaneous
  Country: US (occurrence: US)
  Receive Date: 20130502
  Receipt Date: 20130502
  Transmission Date: 20140414
  Serious: No
  Sender: FDA-Public Use
  Company Number: US-009507513-1304USA017800

PATIENT
  Sex: Female

DRUGS (1)
  1. JANUMET XR [Suspect]
     Dosage: TWICE A DAY
     Route: 048
     Dates: start: 201301

REACTIONS (3)
  - Accidental exposure to product [Unknown]
  - Product quality issue [Unknown]
  - No adverse event [Unknown]
